FAERS Safety Report 6527433-1 (Version None)
Quarter: 2010Q1

REPORT INFORMATION
  Report Type: 
  Country: None (occurrence: None)
  Receive Date: 20100104
  Receipt Date: 20100104
  Transmission Date: 20100710
  Serious: Yes (Other)
  Sender: FDA-Public Use
  Company Number: None

PATIENT
  Age: 65 Year
  Sex: Male
  Weight: 82.5547 kg

DRUGS (2)
  1. COZAAR [Suspect]
     Indication: BLOOD PRESSURE INCREASED
     Dosage: 1 TAB DAILY PO
     Route: 048
     Dates: start: 20091217, end: 20091229
  2. COZAAR [Suspect]
     Indication: CARDIAC FAILURE
     Dosage: 1 TAB DAILY PO
     Route: 048
     Dates: start: 20091217, end: 20091229

REACTIONS (2)
  - BLOOD PRESSURE INCREASED [None]
  - CONDITION AGGRAVATED [None]
